FAERS Safety Report 21997033 (Version 6)
Quarter: 2023Q2

REPORT INFORMATION
  Report Type: Spontaneous
  Country: JP (occurrence: JP)
  Receive Date: 20230215
  Receipt Date: 20230605
  Transmission Date: 20230722
  Serious: Yes (Disabling, Other)
  Sender: FDA-Public Use
  Company Number: JP-BEH-2023155335

PATIENT
  Age: 72 Year
  Sex: Male
  Weight: 58 kg

DRUGS (9)
  1. KCENTRA [Suspect]
     Active Substance: COAGULATION FACTOR IX HUMAN\COAGULATION FACTOR VII HUMAN\COAGULATION FACTOR X HUMAN\PROTEIN C\PROTEI
     Indication: Procoagulant therapy
     Dosage: 1500 INTERNATIONAL UNIT
     Route: 042
     Dates: start: 20190822, end: 20190822
  2. KCENTRA [Suspect]
     Active Substance: COAGULATION FACTOR IX HUMAN\COAGULATION FACTOR VII HUMAN\COAGULATION FACTOR X HUMAN\PROTEIN C\PROTEI
     Indication: Procoagulant therapy
     Dosage: 1500 INTERNATIONAL UNIT
     Route: 042
     Dates: start: 20190822, end: 20190822
  3. MENATETRENONE [Suspect]
     Active Substance: MENATETRENONE
     Indication: Procoagulant therapy
     Dosage: 40 MILLIGRAM
     Route: 042
     Dates: start: 20190822
  4. WARFARIN POTASSIUM [Concomitant]
     Active Substance: WARFARIN POTASSIUM
     Dosage: 1 MILLIGRAM
     Route: 048
     Dates: start: 20190829
  5. FRESH FROZEN PLASMA [Concomitant]
     Active Substance: HUMAN PLASMA
     Indication: Haemostasis
     Dosage: 4 INTERNATIONAL UNIT
     Route: 042
     Dates: start: 20190822
  6. HUMAN RED BLOOD CELL [Concomitant]
     Active Substance: HUMAN RED BLOOD CELL
     Indication: Haemostasis
     Dosage: 4 INTERNATIONAL UNIT
     Route: 042
     Dates: start: 20190822
  7. LEVETIRACETAM [Concomitant]
     Active Substance: LEVETIRACETAM
     Indication: Seizure prophylaxis
     Dosage: 500 MILLIGRAM, BID
     Route: 042
     Dates: start: 20190822, end: 20190823
  8. OMEPRAZOLE [Concomitant]
     Active Substance: OMEPRAZOLE
     Indication: Prophylaxis against gastrointestinal ulcer
     Dosage: 20 MILLIGRAM, BID
     Route: 042
     Dates: start: 20190822, end: 20190823
  9. CEFTRIAXONE SODIUM [Concomitant]
     Active Substance: CEFTRIAXONE SODIUM
     Indication: Infection prophylaxis
     Dosage: 1 GRAM, BID
     Route: 042
     Dates: start: 20190822, end: 20190824

REACTIONS (5)
  - Cerebral infarction [Recovered/Resolved with Sequelae]
  - Cerebral artery occlusion [Recovered/Resolved with Sequelae]
  - Brain herniation [Unknown]
  - Cerebral infarction [Unknown]
  - Vascular occlusion [Unknown]

NARRATIVE: CASE EVENT DATE: 20190823
